FAERS Safety Report 5424344-X (Version None)
Quarter: 2007Q3

REPORT INFORMATION
  Report Type: 
  Country: None (occurrence: None)
  Receive Date: 20070727
  Receipt Date: 20070427
  Transmission Date: 20080115
  Serious: No
  Sender: FDA-Public Use
  Company Number: 264090

PATIENT
  Age: 71 Year
  Sex: Male

DRUGS (5)
  1. LEVEMIR [Suspect]
     Indication: INSULIN-REQUIRING TYPE II DIABETES MELLITUS
     Dosage: SUBCUTANEOUS
     Route: 058
  2. AVAPRO [Concomitant]
  3. TRICOR /00493301/ (FENOFIBRATE) [Concomitant]
  4. ASPIRIN [Concomitant]
  5. THYROID THERAPY [Concomitant]

REACTIONS (1)
  - INJECTION SITE HAEMORRHAGE [None]
